FAERS Safety Report 10742173 (Version 1)
Quarter: 2015Q1

REPORT INFORMATION
  Report Type: Spontaneous
  Country: US (occurrence: US)
  Receive Date: 20150127
  Receipt Date: 20150127
  Transmission Date: 20150721
  Serious: Yes (Hospitalization, Other)
  Sender: FDA-Public Use
  Company Number: US-PFIZER INC-2015027789

PATIENT
  Age: 75 Year
  Sex: Female

DRUGS (2)
  1. XARELTO [Suspect]
     Active Substance: RIVAROXABAN
     Dosage: UNK
  2. SUTENT [Suspect]
     Active Substance: SUNITINIB MALATE
     Indication: MALIGNANT NEOPLASM OF ISLETS OF LANGERHANS
     Dosage: 12.5 MG, DAILY
     Route: 048
     Dates: start: 20141209

REACTIONS (12)
  - Gait disturbance [Unknown]
  - Headache [Unknown]
  - Vomiting [Unknown]
  - Conjunctival haemorrhage [Recovered/Resolved]
  - Blood pressure increased [Unknown]
  - Decreased appetite [Unknown]
  - Blood urea increased [Unknown]
  - Pruritus generalised [Unknown]
  - Insomnia [Unknown]
  - Asthenia [Unknown]
  - Dizziness [Unknown]
  - Blood creatine increased [Unknown]

NARRATIVE: CASE EVENT DATE: 20150119
